FAERS Safety Report 10286058 (Version 3)
Quarter: 2014Q4

REPORT INFORMATION
  Report Type: Spontaneous
  Country: NZ (occurrence: NZ)
  Receive Date: 20140709
  Receipt Date: 20141219
  Transmission Date: 20150528
  Serious: Yes (Death)
  Sender: FDA-Public Use
  Company Number: NZ-ELI_LILLY_AND_COMPANY-NZ201407001208

PATIENT
  Age: 42 Year
  Sex: Male
  Weight: 120 kg

DRUGS (7)
  1. ZYPREXA RELPREVV [Suspect]
     Active Substance: OLANZAPINE PAMOATE
     Indication: BIPOLAR I DISORDER
     Dosage: 405 MG, MONTHLY (1/M)
     Route: 030
     Dates: start: 201308
  2. CLONAZEPAM. [Concomitant]
     Active Substance: CLONAZEPAM
     Indication: PRODUCT USED FOR UNKNOWN INDICATION
     Dosage: 1.5MG, UNKNOWN
     Route: 048
  3. METFORMIN [Concomitant]
     Active Substance: METFORMIN HYDROCHLORIDE
     Dosage: 1000 MG, UNKNOWN
     Route: 048
  4. LITHIUM [Concomitant]
     Active Substance: LITHIUM CARBONATE
     Dosage: 1200 MG, UNKNOWN
     Route: 048
  5. OMEGA                              /01454401/ [Concomitant]
     Indication: PRODUCT USED FOR UNKNOWN INDICATION
     Dosage: UNK, UNKNOWN
     Route: 065
  6. OLANZAPINE. [Suspect]
     Active Substance: OLANZAPINE
     Indication: BIPOLAR DISORDER
     Dosage: 10 MG, UNKNOWN
     Route: 048
     Dates: end: 201309
  7. MELATONIN [Concomitant]
     Active Substance: MELATONIN
     Dosage: 3 MG, UNKNOWN
     Route: 048

REACTIONS (2)
  - Sudden death [Fatal]
  - Overdose [Unknown]

NARRATIVE: CASE EVENT DATE: 20140626
